FAERS Safety Report 22243360 (Version 2)
Quarter: 2023Q4

REPORT INFORMATION
  Report Type: Spontaneous
  Country: US (occurrence: US)
  Receive Date: 20230424
  Receipt Date: 20231024
  Transmission Date: 20240109
  Serious: No
  Sender: FDA-Public Use
  Company Number: US-SA-SAC20230421000718

PATIENT
  Age: 4 Year
  Sex: Male
  Weight: 19.4 kg

DRUGS (1)
  1. DUPIXENT [Suspect]
     Active Substance: DUPILUMAB
     Indication: Dermatitis atopic
     Dosage: 200 MG, Q4W
     Route: 058

REACTIONS (6)
  - Skin haemorrhage [Unknown]
  - Dry skin [Recovering/Resolving]
  - Skin weeping [Unknown]
  - Skin fissures [Unknown]
  - Pruritus [Recovering/Resolving]
  - Incorrect dose administered [Unknown]
